FAERS Safety Report 10645861 (Version 2)
Quarter: 2014Q4

REPORT INFORMATION
  Report Type: Spontaneous
  Country: US (occurrence: US)
  Receive Date: 20141211
  Receipt Date: 20141211
  Transmission Date: 20150529
  Serious: No
  Sender: FDA-Public Use
  Company Number: US-BAUSCH-SYM-2014-24339

PATIENT
  Age: 17 Year
  Sex: Male

DRUGS (3)
  1. XENAZINE [Suspect]
     Active Substance: TETRABENAZINE
     Route: 048
     Dates: start: 2014
  2. XENAZINE [Suspect]
     Active Substance: TETRABENAZINE
     Indication: TREMOR
     Dosage: 12.5MG 1 + 1/2 TABLETS IN THE MORNING, 1 TABLET IN THE AFTERNOON, AND 1 + 1/2 TABLETS AT BEDTIME
     Route: 048
     Dates: start: 20140416
  3. XENAZINE [Suspect]
     Active Substance: TETRABENAZINE
     Route: 048
     Dates: start: 2014

REACTIONS (4)
  - Drug administration error [Unknown]
  - Incorrect dose administered [Unknown]
  - Hypersomnia [Unknown]
  - Intentional product use issue [Not Recovered/Not Resolved]

NARRATIVE: CASE EVENT DATE: 2014
